FAERS Safety Report 8534956-2 (Version None)
Quarter: 2012Q3

REPORT INFORMATION
  Report Type: 
  Country: None (occurrence: None)
  Receive Date: 20120724
  Receipt Date: 20120627
  Transmission Date: 20120928
  Serious: No
  Sender: FDA-Public Use
  Company Number: US-PFIZER INC-2012155774

PATIENT
  Sex: Female
  Weight: 81.633 kg

DRUGS (4)
  1. LYRICA [Suspect]
     Indication: NEURALGIA
     Dosage: 75 MG, 2X/DAY
     Dates: start: 20120101
  2. ALEVE [Concomitant]
     Indication: PAIN
     Dosage: UNK
  3. LYRICA [Suspect]
     Dosage: 75 MG, DAILY
     Dates: end: 20120623
  4. ADVAIR DISKUS 100/50 [Concomitant]
     Indication: ASTHMA
     Dosage: UNK

REACTIONS (6)
  - WITHDRAWAL SYNDROME [None]
  - INSOMNIA [None]
  - DIARRHOEA [None]
  - NAUSEA [None]
  - DECREASED APPETITE [None]
  - HEADACHE [None]
